FAERS Safety Report 14645027 (Version 1)
Quarter: 2018Q1

REPORT INFORMATION
  Report Type: Spontaneous
  Country: US (occurrence: US)
  Receive Date: 20180315
  Receipt Date: 20180315
  Transmission Date: 20180509
  Serious: Yes (Hospitalization)
  Sender: FDA-Public Use
  Company Number: US-BIOGEN-2018BI00539370

PATIENT
  Sex: Male

DRUGS (1)
  1. SPINRAZA [Suspect]
     Active Substance: NUSINERSEN
     Indication: SPINAL MUSCULAR ATROPHY
     Route: 065
     Dates: start: 20170513

REACTIONS (5)
  - Lower respiratory tract infection [Unknown]
  - Anaesthetic complication pulmonary [Unknown]
  - Gastrostomy [Unknown]
  - Increased bronchial secretion [Not Recovered/Not Resolved]
  - Drooling [Unknown]

NARRATIVE: CASE EVENT DATE: 2017
